FAERS Safety Report 8358616-6 (Version None)
Quarter: 2012Q2

REPORT INFORMATION
  Report Type: 
  Country: None (occurrence: None)
  Receive Date: 20120514
  Receipt Date: 20120509
  Transmission Date: 20120825
  Serious: Yes (Other)
  Sender: FDA-Public Use
  Company Number: GB-ELI_LILLY_AND_COMPANY-GB201204001493

PATIENT
  Sex: Male
  Weight: 101.7 kg

DRUGS (9)
  1. PIOGLITAZONE [Concomitant]
     Dosage: 45 MG, UNKNOWN
  2. RAMIPRIL [Concomitant]
     Dosage: 10 MG, UNKNOWN
  3. FELODIPINE [Concomitant]
     Dosage: 5 MG, UNKNOWN
  4. BYDUREON [Suspect]
     Indication: TYPE 2 DIABETES MELLITUS
     Dosage: 2 MG, WEEKLY (1/W)
     Route: 058
     Dates: start: 20120307, end: 20120321
  5. ATENDOL [Concomitant]
     Dosage: 50 MG, UNKNOWN
  6. PRAVASTATIN [Concomitant]
     Dosage: 40 MG, UNKNOWN
  7. ASPIRIN [Concomitant]
     Dosage: 75 MG, UNKNOWN
  8. LASOPRAZOLE [Concomitant]
     Dosage: 15 MG, UNKNOWN
  9. METFORMIN HCL [Concomitant]
     Dosage: 500 MG, EVERY 8 HRS

REACTIONS (1)
  - INJECTION SITE REACTION [None]
